FAERS Safety Report 6061891-4 (Version None)
Quarter: 2009Q1

REPORT INFORMATION
  Report Type: 
  Country: None (occurrence: None)
  Receive Date: 20090202
  Receipt Date: 20090126
  Transmission Date: 20090719
  Serious: Yes (Other)
  Sender: FDA-Public Use
  Company Number: PHHY2009BR03178

PATIENT
  Age: 75 Year
  Sex: Male
  Weight: 78 kg

DRUGS (3)
  1. DIOVAN HCT [Suspect]
     Indication: HYPERTENSION
     Dosage: 1 DF (160/12.5 MG), QD
     Dates: start: 19990101
  2. CYMBALTA [Concomitant]
     Indication: DEPRESSION
     Dosage: 1 DF (60 MG), QD
     Route: 048
     Dates: start: 20080101
  3. GABAPENTIN [Concomitant]
     Indication: NEUROPATHY PERIPHERAL
     Dosage: 2 DF (300 MG), QD
     Route: 048
     Dates: start: 20080101

REACTIONS (1)
  - MACULAR DEGENERATION [None]
